FAERS Safety Report 5705236-5 (Version None)
Quarter: 2008Q2

REPORT INFORMATION
  Report Type: 
  Country: None (occurrence: None)
  Receive Date: 20080410
  Receipt Date: 20080325
  Transmission Date: 20081010
  Serious: Yes (Other)
  Sender: FDA-Public Use
  Company Number: S08-GER-01251-01

PATIENT
  Age: 71 Year
  Sex: Male

DRUGS (1)
  1. MONURIL ^ZAMBON^ (FOSFOMYCIN TROMETAMOL) [Suspect]
     Indication: CYSTITIS
     Dosage: 3 G ONCE PO
     Route: 048
     Dates: start: 20080301, end: 20080301

REACTIONS (1)
  - MICTURITION DISORDER [None]
